FAERS Safety Report 24028923 (Version 1)
Quarter: 2024Q2

REPORT INFORMATION
  Report Type: Spontaneous
  Country: PL (occurrence: PL)
  Receive Date: 20240628
  Receipt Date: 20240628
  Transmission Date: 20240717
  Serious: Yes (Hospitalization, Other)
  Sender: FDA-Public Use
  Company Number: PL-JNJFOC-20240657695

PATIENT
  Age: 62 Year
  Sex: Female

DRUGS (13)
  1. TECVAYLI [Suspect]
     Active Substance: TECLISTAMAB-CQYV
     Indication: Plasma cell myeloma
     Dosage: CYCLE 1; DAY 2
     Route: 065
  2. TECVAYLI [Suspect]
     Active Substance: TECLISTAMAB-CQYV
     Dosage: CYCLE 1;  DAY 4
     Route: 065
  3. TECVAYLI [Suspect]
     Active Substance: TECLISTAMAB-CQYV
     Dosage: CYCLE 1; D8, 15,AND 22
     Route: 065
  4. TECVAYLI [Suspect]
     Active Substance: TECLISTAMAB-CQYV
     Dosage: CYCLE 2; DAY 8, 15 AND 22
     Route: 065
  5. TECVAYLI [Suspect]
     Active Substance: TECLISTAMAB-CQYV
     Dosage: CYCLE 3 TO CYCLE 6; DAY 1 AND 15
     Route: 065
  6. TECVAYLI [Suspect]
     Active Substance: TECLISTAMAB-CQYV
     Dosage: CYCLE 7+; ON DAY 1
     Route: 065
  7. TECVAYLI [Suspect]
     Active Substance: TECLISTAMAB-CQYV
     Dosage: CYCLE 10 DAY 2
     Route: 065
  8. TECVAYLI [Suspect]
     Active Substance: TECLISTAMAB-CQYV
     Dosage: CYCLE 10 DAY 4
     Route: 065
  9. TECVAYLI [Suspect]
     Active Substance: TECLISTAMAB-CQYV
     Dosage: CYCLE 10 DAY 8
     Route: 065
  10. DARZALEX [Suspect]
     Active Substance: DARATUMUMAB
     Indication: Plasma cell myeloma
     Dosage: C1 - C2: D1, 8, 15, 22?C3 - C6: D1, 15 ?C7+: D1
     Route: 058
  11. ACETAMINOPHEN [Concomitant]
     Active Substance: ACETAMINOPHEN
     Indication: Premedication
     Dosage: 1 X 1 G
     Route: 042
  12. CLEMASTINE [Concomitant]
     Active Substance: CLEMASTINE
     Indication: Premedication
     Dosage: 1 X 2 MG
     Route: 042
  13. DEXAMETHASONE [Concomitant]
     Active Substance: DEXAMETHASONE
     Indication: Premedication
     Dosage: 1 X 20 MG
     Route: 042

REACTIONS (8)
  - Herpes virus infection [Unknown]
  - Gastrointestinal infection [Unknown]
  - Cytokine release syndrome [Unknown]
  - Sinusitis [Unknown]
  - Hepatitis B reactivation [Unknown]
  - Escherichia urinary tract infection [Unknown]
  - Off label use [Unknown]
  - Intentional product use issue [Unknown]
